FAERS Safety Report 21168070 (Version 1)
Quarter: 2022Q3

REPORT INFORMATION
  Report Type: Spontaneous
  Country: CN (occurrence: CN)
  Receive Date: 20220803
  Receipt Date: 20220803
  Transmission Date: 20221027
  Serious: Yes (Other)
  Sender: FDA-Public Use
  Company Number: CN-PFIZER INC-PV202200034765

PATIENT
  Age: 42 Year
  Sex: Male
  Weight: 72 kg

DRUGS (3)
  1. CYTARABINE [Suspect]
     Active Substance: CYTARABINE
     Indication: Chemotherapy
     Dosage: 0.05 G, 1X/DAY
     Route: 037
     Dates: start: 20220703, end: 20220703
  2. DEXAMETHASONE [Concomitant]
     Active Substance: DEXAMETHASONE
     Indication: Chemotherapy
     Dosage: 0.005 G, 1X/DAY
     Route: 037
     Dates: start: 20220703, end: 20220703
  3. METHOTREXATE [Concomitant]
     Active Substance: METHOTREXATE
     Indication: Chemotherapy
     Dosage: 0.015 G, 1X/DAY
     Route: 037
     Dates: start: 20220703, end: 20220703

REACTIONS (1)
  - Hypocalcaemia [Recovered/Resolved]

NARRATIVE: CASE EVENT DATE: 20220704
